FAERS Safety Report 20065665 (Version 15)
Quarter: 2023Q2

REPORT INFORMATION
  Report Type: Spontaneous
  Country: JP (occurrence: JP)
  Receive Date: 20211113
  Receipt Date: 20230608
  Transmission Date: 20230721
  Serious: Yes (Other)
  Sender: FDA-Public Use
  Company Number: JP-UNITED THERAPEUTICS-UNT-2021-021471

PATIENT
  Age: 2 Year
  Sex: Female
  Weight: 9.6 kg

DRUGS (46)
  1. UNITUXIN [Suspect]
     Active Substance: DINUTUXIMAB
     Indication: Neuroblastoma
     Dosage: UNK, CYCLICAL (CYCLE 1)
     Route: 041
     Dates: start: 20210927, end: 20210930
  2. UNITUXIN [Suspect]
     Active Substance: DINUTUXIMAB
     Dosage: 17.5 MG/M2, CYCLICAL (CYCLE 2)
     Route: 041
     Dates: start: 20211101, end: 20211102
  3. UNITUXIN [Suspect]
     Active Substance: DINUTUXIMAB
     Dosage: UNK, CYCLICAL (CYCLE 2)
     Route: 041
     Dates: start: 20211102, end: 202111
  4. UNITUXIN [Suspect]
     Active Substance: DINUTUXIMAB
     Dosage: 17.5 MG/M2,, CYCLICAL (CYCLE 2)
     Route: 041
     Dates: start: 20211105, end: 20211106
  5. UNITUXIN [Suspect]
     Active Substance: DINUTUXIMAB
     Dosage: 17.5 MG/M2, CYCLICAL (CYCLE 3)
     Route: 041
     Dates: start: 20211129, end: 20211202
  6. UNITUXIN [Suspect]
     Active Substance: DINUTUXIMAB
     Dosage: 17.5 MG/M2, CYCLICAL (CYCLE 4)
     Route: 041
     Dates: start: 20220104, end: 20220107
  7. UNITUXIN [Suspect]
     Active Substance: DINUTUXIMAB
     Dosage: 17.5 MG/M2, CYCLICAL (CYCLE 5)
     Route: 041
     Dates: start: 20220207, end: 20220210
  8. UNITUXIN [Suspect]
     Active Substance: DINUTUXIMAB
     Dosage: 17.5 MG/M2, CYCLICAL (CYCLE 6)
     Route: 041
     Dates: start: 20220308, end: 20220311
  9. FILGRASTIM [Suspect]
     Active Substance: FILGRASTIM
     Indication: Neuroblastoma
     Dosage: UNK (CYCLE 1)
     Route: 058
     Dates: start: 20210924, end: 20211007
  10. FILGRASTIM [Suspect]
     Active Substance: FILGRASTIM
     Dosage: 5 ?G/KG (CYCLE 3)
     Route: 058
     Dates: start: 20211126, end: 20211209
  11. FILGRASTIM [Suspect]
     Active Substance: FILGRASTIM
     Dosage: 5 ?G/KG (CYCLE 5)
     Route: 058
     Dates: start: 20220204, end: 20220217
  12. TECELEUKIN [Suspect]
     Active Substance: TECELEUKIN
     Indication: Neuroblastoma
     Dosage: 750,000 UNITS/M2, CYCLICAL (CYCLE 2)
     Route: 042
     Dates: start: 20211025, end: 20211028
  13. TECELEUKIN [Suspect]
     Active Substance: TECELEUKIN
     Dosage: 1000,000 UNITS/M2, CYCLICAL (CYCLE 2)
     Route: 042
     Dates: start: 20211101, end: 20211102
  14. TECELEUKIN [Suspect]
     Active Substance: TECELEUKIN
     Dosage: 500,000 UNITS/M2, CYCLICAL (CYCLE 3) (WITH A 50% DOSE REDUCTION)
     Route: 042
     Dates: start: 20211105, end: 20211106
  15. TECELEUKIN [Suspect]
     Active Substance: TECELEUKIN
     Dosage: 750,000 UNITS/M2, CYCLICAL (CYCLE 4)
     Route: 042
     Dates: start: 20211228, end: 20211231
  16. TECELEUKIN [Suspect]
     Active Substance: TECELEUKIN
     Dosage: 1000,000 UNITS/M2 CYCLICAL (CYCLE 5)
     Route: 042
     Dates: start: 20220104, end: 20220104
  17. TECELEUKIN [Suspect]
     Active Substance: TECELEUKIN
     Dosage: 500,000 UNITS/M2 (RESUMED WITH HALF DOSE, CYCLE 6)
     Route: 042
     Dates: start: 20220105, end: 20220107
  18. TECELEUKIN [Suspect]
     Active Substance: TECELEUKIN
     Dosage: 750,000 UNITS/M2 CYCLICAL (CYCLE 6)
     Route: 042
     Dates: start: 20220301, end: 20220304
  19. TECELEUKIN [Suspect]
     Active Substance: TECELEUKIN
     Dosage: 500,000 UNITS/M2 CYCLICAL (CYCLE 6)
     Route: 042
     Dates: start: 20220308, end: 20220311
  20. ACETAMINOPHEN [Concomitant]
     Active Substance: ACETAMINOPHEN
     Indication: Antipyresis
     Dosage: UNK
     Route: 041
     Dates: start: 20210927, end: 20211006
  21. ACETAMINOPHEN [Concomitant]
     Active Substance: ACETAMINOPHEN
     Indication: Prophylaxis
     Dosage: UNK
     Route: 041
     Dates: start: 20211101, end: 20211107
  22. ACETAMINOPHEN [Concomitant]
     Active Substance: ACETAMINOPHEN
     Dosage: UNK (IN CYCLE 3)
     Route: 041
     Dates: start: 20211129, end: 20211202
  23. ACETAMINOPHEN [Concomitant]
     Active Substance: ACETAMINOPHEN
     Dosage: UNK
     Route: 041
     Dates: start: 20211228, end: 20211231
  24. ACETAMINOPHEN [Concomitant]
     Active Substance: ACETAMINOPHEN
     Dosage: UNK
     Route: 041
     Dates: start: 20220104, end: 20220108
  25. ACETAMINOPHEN [Concomitant]
     Active Substance: ACETAMINOPHEN
     Dosage: UNK
     Route: 041
     Dates: start: 20220207, end: 20220211
  26. ACETAMINOPHEN [Concomitant]
     Active Substance: ACETAMINOPHEN
     Dosage: UNK
     Route: 041
     Dates: start: 20220301, end: 20220304
  27. ACETAMINOPHEN [Concomitant]
     Active Substance: ACETAMINOPHEN
     Dosage: UNK
     Route: 041
     Dates: start: 20220308, end: 20220312
  28. HYDROXYZINE HYDROCHLORIDE [Concomitant]
     Active Substance: HYDROXYZINE HYDROCHLORIDE
     Indication: Prophylaxis
     Dosage: UNK
     Route: 065
     Dates: start: 20210927, end: 20210930
  29. HYDROXYZINE HYDROCHLORIDE [Concomitant]
     Active Substance: HYDROXYZINE HYDROCHLORIDE
     Dosage: UNK
     Route: 065
     Dates: start: 20211101, end: 20211106
  30. HYDROXYZINE HYDROCHLORIDE [Concomitant]
     Active Substance: HYDROXYZINE HYDROCHLORIDE
     Dosage: UNK
     Route: 065
     Dates: start: 20211129, end: 20211202
  31. HYDROXYZINE HYDROCHLORIDE [Concomitant]
     Active Substance: HYDROXYZINE HYDROCHLORIDE
     Dosage: UNK
     Route: 065
     Dates: start: 20220104, end: 20220107
  32. HYDROXYZINE HYDROCHLORIDE [Concomitant]
     Active Substance: HYDROXYZINE HYDROCHLORIDE
     Dosage: UNK
     Route: 065
     Dates: start: 20220207, end: 20220210
  33. HYDROXYZINE HYDROCHLORIDE [Concomitant]
     Active Substance: HYDROXYZINE HYDROCHLORIDE
     Dosage: UNK
     Route: 065
     Dates: start: 20220308, end: 20220312
  34. MORPHINE HYDROCHLORIDE [Concomitant]
     Active Substance: MORPHINE HYDROCHLORIDE
     Indication: Pain
     Dosage: UNK
     Route: 041
     Dates: start: 20210927, end: 20211003
  35. MORPHINE HYDROCHLORIDE [Concomitant]
     Active Substance: MORPHINE HYDROCHLORIDE
     Indication: Prophylaxis
     Dosage: UNK
     Route: 041
     Dates: start: 20211101, end: 20211107
  36. MORPHINE HYDROCHLORIDE [Concomitant]
     Active Substance: MORPHINE HYDROCHLORIDE
     Dosage: UNK
     Route: 041
     Dates: start: 20211129, end: 20211203
  37. MORPHINE HYDROCHLORIDE [Concomitant]
     Active Substance: MORPHINE HYDROCHLORIDE
     Dosage: UNK
     Route: 041
     Dates: start: 20220104, end: 20220108
  38. MORPHINE HYDROCHLORIDE [Concomitant]
     Active Substance: MORPHINE HYDROCHLORIDE
     Dosage: UNK
     Route: 041
     Dates: start: 20220207, end: 20220211
  39. MORPHINE HYDROCHLORIDE [Concomitant]
     Active Substance: MORPHINE HYDROCHLORIDE
     Dosage: UNK
     Route: 041
     Dates: start: 20220308, end: 20220312
  40. LASIX [Concomitant]
     Active Substance: FUROSEMIDE
     Indication: Face oedema
     Dosage: UNK
     Route: 065
     Dates: start: 20210929, end: 20211002
  41. LASIX [Concomitant]
     Active Substance: FUROSEMIDE
     Indication: Prophylaxis
     Dosage: UNK
     Route: 065
     Dates: start: 20211101, end: 20211108
  42. LASIX [Concomitant]
     Active Substance: FUROSEMIDE
     Dosage: UNK
     Route: 065
     Dates: start: 20211130, end: 20211201
  43. LASIX [Concomitant]
     Active Substance: FUROSEMIDE
     Dosage: UNK
     Route: 065
     Dates: start: 20220106, end: 20220108
  44. LASIX [Concomitant]
     Active Substance: FUROSEMIDE
     Dosage: 5 MG/KG, QD
     Route: 065
     Dates: start: 20220208, end: 20220211
  45. LASIX [Concomitant]
     Active Substance: FUROSEMIDE
     Dosage: UNK
     Route: 065
     Dates: start: 20220309, end: 20220312
  46. ALBUMIN HUMAN [Concomitant]
     Active Substance: ALBUMIN HUMAN
     Indication: Prophylaxis
     Dosage: UNK
     Route: 065
     Dates: start: 20220106, end: 20220106

REACTIONS (48)
  - Capillary leak syndrome [Recovering/Resolving]
  - Capillary leak syndrome [Recovered/Resolved]
  - Pneumatosis intestinalis [Recovering/Resolving]
  - Ascites [Recovering/Resolving]
  - Face oedema [Recovered/Resolved]
  - Hypoxia [Recovered/Resolved]
  - Hypoxia [Recovered/Resolved]
  - Face oedema [Recovered/Resolved]
  - Face oedema [Recovered/Resolved]
  - Pain [Recovering/Resolving]
  - Urticaria [Recovered/Resolved]
  - Anaemia [Not Recovered/Not Resolved]
  - Anaemia [Not Recovered/Not Resolved]
  - Anaemia [Not Recovered/Not Resolved]
  - Anaemia [Not Recovered/Not Resolved]
  - Platelet count decreased [Recovered/Resolved]
  - Platelet count decreased [Not Recovered/Not Resolved]
  - Platelet count decreased [Not Recovered/Not Resolved]
  - Platelet count decreased [Not Recovered/Not Resolved]
  - Platelet count decreased [Not Recovered/Not Resolved]
  - Alanine aminotransferase increased [Recovered/Resolved]
  - Alanine aminotransferase increased [Recovered/Resolved]
  - Alanine aminotransferase increased [Recovered/Resolved]
  - Alanine aminotransferase increased [Not Recovered/Not Resolved]
  - Aspartate aminotransferase increased [Recovered/Resolved]
  - Aspartate aminotransferase increased [Recovered/Resolved]
  - Aspartate aminotransferase increased [Not Recovered/Not Resolved]
  - Gamma-glutamyltransferase increased [Recovered/Resolved]
  - Gamma-glutamyltransferase increased [Not Recovered/Not Resolved]
  - Gamma-glutamyltransferase increased [Not Recovered/Not Resolved]
  - Pyrexia [Recovered/Resolved]
  - Pyrexia [Recovered/Resolved]
  - Pyrexia [Recovered/Resolved]
  - Pyrexia [Recovered/Resolved]
  - Pyrexia [Recovered/Resolved]
  - Pyrexia [Recovered/Resolved]
  - Hypoalbuminaemia [Recovered/Resolved]
  - Hypoalbuminaemia [Recovered/Resolved]
  - Hypoalbuminaemia [Recovered/Resolved]
  - Hypoalbuminaemia [Not Recovered/Not Resolved]
  - Abdominal pain [Recovered/Resolved]
  - Abdominal pain [Recovered/Resolved]
  - Hyponatraemia [Recovered/Resolved]
  - Eosinophil count increased [Recovered/Resolved]
  - Eosinophil count increased [Recovered/Resolved]
  - Face oedema [Recovered/Resolved]
  - Oedema [Recovered/Resolved]
  - Neutrophil count decreased [Recovered/Resolved]

NARRATIVE: CASE EVENT DATE: 20210927
